FAERS Safety Report 6992359-6 (Version None)
Quarter: 2010Q3

REPORT INFORMATION
  Report Type: 
  Country: None (occurrence: None)
  Receive Date: 20100915
  Receipt Date: 20100901
  Transmission Date: 20110219
  Serious: Yes (Other)
  Sender: FDA-Public Use
  Company Number: JP-ACCORD-005993

PATIENT
  Age: 27 Year
  Sex: Female

DRUGS (5)
  1. MYCOPHENOLATE MOFETIL [Suspect]
     Indication: RENAL TRANSPLANT
     Dosage: 0.50-G-2.00PER-1
  2. CIO-TRIMOXAZOLE (CO-TRIMOXAZOLE) [Suspect]
     Indication: PRODUCT USED FOR UNKNOWN INDICATION
  3. BASILIXIMAB (BASILIXIMAB) [Concomitant]
  4. TACROLIMUS [Concomitant]
  5. CORTICOSTEROIDS (CORTICOSTEROIDS) [Concomitant]

REACTIONS (4)
  - AGRANULOCYTOSIS [None]
  - BLOOD PRESSURE DIASTOLIC DECREASED [None]
  - HAEMOGLOBIN DECREASED [None]
  - NAUSEA [None]
